FAERS Safety Report 16019924 (Version 2)
Quarter: 2019Q3

REPORT INFORMATION
  Report Type: Report from Study
  Country: US (occurrence: US)
  Receive Date: 20190228
  Receipt Date: 20190808
  Transmission Date: 20191004
  Serious: Yes (Hospitalization, Other)
  Sender: FDA-Public Use
  Company Number: US-GILEAD-2019-0393064

PATIENT
  Age: 78 Year
  Sex: Male

DRUGS (7)
  1. LIPITOR [Concomitant]
     Active Substance: ATORVASTATIN CALCIUM
     Dosage: 80 MG, QD
     Route: 048
     Dates: start: 20190125
  2. IDELALISIB [Suspect]
     Active Substance: IDELALISIB
     Dosage: 150 MG, BID
     Route: 048
     Dates: start: 20170208
  3. ELIQUIS [Concomitant]
     Active Substance: APIXABAN
     Dosage: 2.5MG BY MOUTH TWICE DAILY
     Dates: start: 20190716
  4. LIPITOR [Concomitant]
     Active Substance: ATORVASTATIN CALCIUM
     Indication: BLOOD CHOLESTEROL INCREASED
     Dosage: 20 MG
     Route: 048
  5. PLAVIX [Concomitant]
     Active Substance: CLOPIDOGREL BISULFATE
     Dosage: 75MG TABLET BY MOUTH DAILY.
     Dates: start: 20190125
  6. IDELALISIB [Suspect]
     Active Substance: IDELALISIB
     Indication: B-CELL LYMPHOMA
     Dosage: 150 MG, BID
     Route: 048
     Dates: start: 20170208
  7. LIPITOR [Concomitant]
     Active Substance: ATORVASTATIN CALCIUM
     Dosage: 40 MG, QD, HALF TABLET
     Route: 048
     Dates: start: 20190215

REACTIONS (7)
  - Platelet count abnormal [Not Recovered/Not Resolved]
  - Lymphoma [Recovering/Resolving]
  - Radiation injury [Not Recovered/Not Resolved]
  - Renal disorder [Unknown]
  - Transient ischaemic attack [Recovering/Resolving]
  - Carotid arterial embolus [Not Recovered/Not Resolved]
  - Transient ischaemic attack [Not Recovered/Not Resolved]

NARRATIVE: CASE EVENT DATE: 201804
